FAERS Safety Report 16892678 (Version 1)
Quarter: 2019Q4

REPORT INFORMATION
  Report Type: Report from Study
  Country: US (occurrence: US)
  Receive Date: 20191007
  Receipt Date: 20191007
  Transmission Date: 20200122
  Serious: Yes (Hospitalization)
  Sender: FDA-Public Use
  Company Number: US-GILEAD-2019-0431735

PATIENT
  Age: 6 Year
  Sex: Male

DRUGS (20)
  1. HYPERSAL [Concomitant]
     Active Substance: SODIUM CHLORIDE
  2. ERYTHROMYCIN. [Concomitant]
     Active Substance: ERYTHROMYCIN
  3. IPRATROPIUM [Concomitant]
     Active Substance: IPRATROPIUM
  4. OMEPRAZOLE. [Concomitant]
     Active Substance: OMEPRAZOLE
  5. BETHKIS [Concomitant]
     Active Substance: TOBRAMYCIN
  6. AZTREONAM LYSINE [Suspect]
     Active Substance: AZTREONAM LYSINE
     Indication: CYSTIC FIBROSIS
     Dosage: 75 MG, TID FOR 28 DAYS ON, 28 DAYS OFF.
     Route: 055
     Dates: start: 20180405
  7. BACITRACIN. [Concomitant]
     Active Substance: BACITRACIN
  8. NYSTATIN. [Concomitant]
     Active Substance: NYSTATIN
  9. TOBRAMYCIN. [Concomitant]
     Active Substance: TOBRAMYCIN
  10. VITAMIN D NOS [Concomitant]
     Active Substance: VITAMIN D NOS
  11. CREON [Concomitant]
     Active Substance: PANCRELIPASE AMYLASE\PANCRELIPASE LIPASE\PANCRELIPASE PROTEASE
  12. ORKAMBI [Concomitant]
     Active Substance: IVACAFTOR\LUMACAFTOR
  13. BOOST [Concomitant]
     Active Substance: DIETARY SUPPLEMENT
  14. DOCUSATE [Concomitant]
     Active Substance: DOCUSATE
  15. LORATADINE. [Concomitant]
     Active Substance: LORATADINE
  16. MIRALAX [Concomitant]
     Active Substance: POLYETHYLENE GLYCOL 3350
  17. QVAR [Concomitant]
     Active Substance: BECLOMETHASONE DIPROPIONATE
  18. CIPROFLOXACIN. [Concomitant]
     Active Substance: CIPROFLOXACIN
  19. LEVOFLOXACIN. [Concomitant]
     Active Substance: LEVOFLOXACIN
  20. PULMOZYME [Concomitant]
     Active Substance: DORNASE ALFA

REACTIONS (1)
  - Oxygen saturation decreased [Recovered/Resolved]

NARRATIVE: CASE EVENT DATE: 20190918
